FAERS Safety Report 24180691 (Version 1)
Quarter: 2024Q3

REPORT INFORMATION
  Report Type: Spontaneous
  Country: JP (occurrence: JP)
  Receive Date: 20240806
  Receipt Date: 20240806
  Transmission Date: 20241017
  Serious: Yes (Other)
  Sender: SANDOZ
  Company Number: JP-002147023-NVSJ2024JP009313

PATIENT
  Sex: Male

DRUGS (7)
  1. RITALIN [Suspect]
     Active Substance: METHYLPHENIDATE HYDROCHLORIDE
     Dosage: 10 MG
     Route: 048
  2. RITALIN [Suspect]
     Active Substance: METHYLPHENIDATE HYDROCHLORIDE
     Indication: Depression
     Dosage: 20 MG
     Route: 048
  3. RITALIN [Suspect]
     Active Substance: METHYLPHENIDATE HYDROCHLORIDE
     Dosage: 40 MG
     Route: 048
  4. Benzalin [Concomitant]
     Indication: Product used for unknown indication
     Dosage: UNK
     Route: 065
  5. CLOMIPRAMINE HYDROCHLORIDE [Concomitant]
     Active Substance: CLOMIPRAMINE HYDROCHLORIDE
     Indication: Product used for unknown indication
     Dosage: UNK
     Route: 065
  6. Eurodin [Concomitant]
     Indication: Sleep disorder
     Dosage: UNK
     Route: 065
  7. HALOPERIDOL [Concomitant]
     Active Substance: HALOPERIDOL
     Indication: Product used for unknown indication
     Dosage: UNK
     Route: 065

REACTIONS (6)
  - Hallucination, auditory [Recovered/Resolved]
  - Extrapyramidal disorder [Recovering/Resolving]
  - Akathisia [Recovering/Resolving]
  - Dental caries [Unknown]
  - Dyskinesia [Recovering/Resolving]
  - Therapeutic product effect incomplete [Unknown]
